FAERS Safety Report 10185145 (Version 3)
Quarter: 2014Q2

REPORT INFORMATION
  Report Type: Other
  Country: GB (occurrence: GB)
  Receive Date: 20140521
  Receipt Date: 20140620
  Transmission Date: 20141212
  Serious: Yes (Other)
  Sender: FDA-Public Use
  Company Number: GB-TARO PHARMACEUTICALS U.S.A., INC-2014SUN01113

PATIENT
  Age: 49 Year
  Sex: Female

DRUGS (4)
  1. WARFARIN [Suspect]
     Indication: CEREBROVASCULAR ACCIDENT PROPHYLAXIS
     Dosage: UNK
     Route: 065
     Dates: start: 20100510, end: 20140423
  2. WARFARIN [Interacting]
     Indication: ATRIAL FIBRILLATION
     Dosage: UNK
     Route: 065
     Dates: start: 20140425
  3. XARELTO [Interacting]
     Indication: CEREBROVASCULAR ACCIDENT PROPHYLAXIS
     Dosage: 20 MG, UNK
     Route: 065
     Dates: start: 20140424, end: 20140424
  4. XARELTO [Interacting]
     Indication: ATRIAL FIBRILLATION

REACTIONS (3)
  - Drug interaction [Unknown]
  - Mouth haemorrhage [Unknown]
  - Epistaxis [Recovered/Resolved]
